FAERS Safety Report 7563282-3 (Version None)
Quarter: 2011Q2

REPORT INFORMATION
  Report Type: 
  Country: None (occurrence: None)
  Receive Date: 20110622
  Receipt Date: 20110618
  Transmission Date: 20111010
  Serious: Yes (Other)
  Sender: FDA-Public Use
  Company Number: A0931963A

PATIENT
  Sex: Female

DRUGS (1)
  1. NICORETTE [Suspect]
     Indication: SMOKING CESSATION THERAPY

REACTIONS (8)
  - SPEECH DISORDER [None]
  - TOOTH EXTRACTION [None]
  - RESPIRATORY DISORDER [None]
  - NICOTINE DEPENDENCE [None]
  - EATING DISORDER [None]
  - DYSPHAGIA [None]
  - LIP AND/OR ORAL CAVITY CANCER [None]
  - INTENTIONAL DRUG MISUSE [None]
